FAERS Safety Report 5392967-2 (Version None)
Quarter: 2007Q3

REPORT INFORMATION
  Report Type: 
  Country: None (occurrence: None)
  Receive Date: 20070719
  Receipt Date: 20070713
  Transmission Date: 20080115
  Serious: Yes (Hospitalization)
  Sender: FDA-Public Use
  Company Number: 2007BI007586

PATIENT
  Age: 67 Year
  Sex: Female

DRUGS (9)
  1. AVONEX [Suspect]
     Indication: MULTIPLE SCLEROSIS
     Dosage: 30 UG;QW; IM
     Route: 030
     Dates: start: 20010504
  2. SYNTHROID [Concomitant]
  3. DDAVP (NEEDS NO REFRIGERATION) [Concomitant]
  4. DITROPAN [Concomitant]
  5. LOPRESSOR [Concomitant]
  6. DETROL [Concomitant]
  7. HYDROCHLOROTHIAZIDE [Concomitant]
  8. PROVIGIL [Concomitant]
  9. PREDNISONE [Concomitant]

REACTIONS (5)
  - BACTERAEMIA [None]
  - HYPOTHYROIDISM [None]
  - IRON DEFICIENCY ANAEMIA [None]
  - URINARY TRACT INFECTION [None]
  - UROSEPSIS [None]
